FAERS Safety Report 14573491 (Version 1)
Quarter: 2018Q1

REPORT INFORMATION
  Report Type: Spontaneous
  Country: SE (occurrence: SE)
  Receive Date: 20180226
  Receipt Date: 20180226
  Transmission Date: 20180509
  Serious: Yes (Other)
  Sender: FDA-Public Use
  Company Number: SE-JNJFOC-20180232825

PATIENT
  Sex: Female

DRUGS (1)
  1. INVEGA [Suspect]
     Active Substance: PALIPERIDONE
     Indication: SCHIZOPHRENIA
     Route: 048

REACTIONS (6)
  - Diabetes mellitus [Unknown]
  - Osteoarthritis [Unknown]
  - Myocardial infarction [Unknown]
  - Sepsis [Unknown]
  - Pneumonia [Unknown]
  - Weight increased [Unknown]
